FAERS Safety Report 5630211-9 (Version None)
Quarter: 2008Q1

REPORT INFORMATION
  Report Type: 
  Country: None (occurrence: None)
  Receive Date: 20080213
  Receipt Date: 20080204
  Transmission Date: 20080703
  Serious: Yes (Death)
  Sender: FDA-Public Use
  Company Number: 2008-00992

PATIENT
  Age: 74 Year
  Sex: Male

DRUGS (7)
  1. PERPHENAZINE AND AMITRIPTYLINE HYDROCHLORIDE [Suspect]
  2. PROPOXYPHENE HYDROCHLORIDE AND ACETAMINOPHEN [Suspect]
  3. CLONAZEPAM [Suspect]
  4. FIORICET [Suspect]
  5. MORPHINE SULFATE [Suspect]
  6. VENLAFAXINE HCL [Suspect]
  7. L-DOPA+ RELATED [Suspect]

REACTIONS (1)
  - DEATH [None]
